FAERS Safety Report 23280940 (Version 5)
Quarter: 2024Q1

REPORT INFORMATION
  Report Type: Report from Study
  Country: US (occurrence: US)
  Receive Date: 20231211
  Receipt Date: 20240322
  Transmission Date: 20240410
  Serious: Yes (Other)
  Sender: FDA-Public Use
  Company Number: US-DECIPHERA PHARMACEUTICALS LLC-2023US001033

PATIENT
  Age: 76 Year
  Sex: Male

DRUGS (3)
  1. QINLOCK [Suspect]
     Active Substance: RIPRETINIB
     Indication: Gastrointestinal stromal tumour
     Dosage: 150 MILLIGRAM, QD
     Route: 048
     Dates: start: 20231020
  2. QINLOCK [Suspect]
     Active Substance: RIPRETINIB
     Dosage: 150 MILLIGRAM, QD
     Route: 048
     Dates: end: 20240206
  3. QINLOCK [Suspect]
     Active Substance: RIPRETINIB
     Dosage: 150 MILLIGRAM, QD
     Route: 048
     Dates: start: 20240221

REACTIONS (15)
  - Metastases to liver [Unknown]
  - Malignant neoplasm progression [Unknown]
  - Malignant melanoma of eyelid [Unknown]
  - Malignant melanoma [Unknown]
  - Dry eye [Unknown]
  - Eyelids pruritus [Unknown]
  - Ocular hyperaemia [Unknown]
  - Abdominal discomfort [Unknown]
  - Pollakiuria [Unknown]
  - Blood albumin decreased [Not Recovered/Not Resolved]
  - Skin lesion [Unknown]
  - Viral infection [Unknown]
  - Dyspepsia [Unknown]
  - Abdominal pain upper [Recovering/Resolving]
  - Fatigue [Unknown]
